FAERS Safety Report 10223075 (Version 2)
Quarter: 2014Q2

REPORT INFORMATION
  Report Type: Spontaneous
  Country: AU (occurrence: AU)
  Receive Date: 20140607
  Receipt Date: 20140616
  Transmission Date: 20141212
  Serious: Yes (Other)
  Sender: FDA-Public Use
  Company Number: PHHY2014AU066404

PATIENT
  Sex: Male

DRUGS (3)
  1. EXJADE [Suspect]
     Indication: MYELODYSPLASTIC SYNDROME
     Dosage: UNK UKN, UNK
  2. EXJADE [Suspect]
     Dosage: UNK (DOSE REDUCED)
  3. EXJADE [Suspect]
     Dosage: UNK (DOSE INCREASED)

REACTIONS (1)
  - Renal disorder [Unknown]
